FAERS Safety Report 13770997 (Version 1)
Quarter: 2017Q3

REPORT INFORMATION
  Report Type: Report from Study
  Country: None (occurrence: GB)
  Receive Date: 20170720
  Receipt Date: 20170720
  Transmission Date: 20171127
  Serious: Yes (Hospitalization)
  Sender: FDA-Public Use
  Company Number: GB-ABBVIE-17K-167-2018953-00

PATIENT
  Sex: Female

DRUGS (2)
  1. DUODOPA [Suspect]
     Active Substance: CARBIDOPA\LEVODOPA
     Dosage: REDUCED DOSE
     Route: 050
  2. DUODOPA [Suspect]
     Active Substance: CARBIDOPA\LEVODOPA
     Indication: PARKINSON^S DISEASE
     Dosage: 100ML CASSETTE
     Route: 050

REACTIONS (10)
  - Asthenia [Recovering/Resolving]
  - Hospitalisation [Unknown]
  - Mobility decreased [Unknown]
  - Device kink [Unknown]
  - Weight decreased [Recovering/Resolving]
  - Restless legs syndrome [Unknown]
  - Muscle tightness [Unknown]
  - Incorrect dose administered [Unknown]
  - General physical health deterioration [Unknown]
  - Overdose [Unknown]
